FAERS Safety Report 23709843 (Version 1)
Quarter: 2024Q2

REPORT INFORMATION
  Report Type: Spontaneous
  Country: US (occurrence: US)
  Receive Date: 20240405
  Receipt Date: 20240405
  Transmission Date: 20240715
  Serious: No
  Sender: FDA-Public Use
  Company Number: US-TEVA-VS-3174049

PATIENT
  Age: 87 Year
  Sex: Female
  Weight: 39 kg

DRUGS (4)
  1. QVAR REDIHALER [Suspect]
     Active Substance: BECLOMETHASONE DIPROPIONATE
     Indication: Asthma
     Dosage: DOSAGE: 40 MCG 40 MCG/DOSE, PATIENT DOSE STARTED QVAR REDIHALER ABOUT 3 WEEKS AGO, 2 INHALATIONS ...
     Route: 055
  2. QVAR REDIHALER [Suspect]
     Active Substance: BECLOMETHASONE DIPROPIONATE
  3. QVAR REDIHALER [Suspect]
     Active Substance: BECLOMETHASONE DIPROPIONATE
  4. TYLENOL [Concomitant]
     Active Substance: ACETAMINOPHEN
     Route: 065

REACTIONS (3)
  - Cough [Unknown]
  - Headache [Unknown]
  - Nightmare [Unknown]
